FAERS Safety Report 21456462 (Version 1)
Quarter: 2022Q4

REPORT INFORMATION
  Report Type: Report from Study
  Country: CA (occurrence: CA)
  Receive Date: 20221014
  Receipt Date: 20221014
  Transmission Date: 20230113
  Serious: Yes (Other)
  Sender: FDA-Public Use
  Company Number: CA-CELLTRION INC.-2022CA016618

PATIENT

DRUGS (1)
  1. TRUXIMA [Suspect]
     Active Substance: RITUXIMAB-ABBS
     Indication: Hairy cell leukaemia
     Dosage: 900 MG X 4DOSES WEEKLY
     Route: 042

REACTIONS (4)
  - Hairy cell leukaemia [Unknown]
  - Herpes simplex pneumonia [Unknown]
  - Inability to afford medication [Unknown]
  - Off label use [Unknown]
